FAERS Safety Report 7203846-X (Version None)
Quarter: 2010Q4

REPORT INFORMATION
  Report Type: 
  Country: None (occurrence: None)
  Receive Date: 20101217
  Receipt Date: 20101029
  Transmission Date: 20110411
  Serious: No
  Sender: FDA-Public Use
  Company Number: 2010-00932

PATIENT
  Age: 67 Year
  Sex: Female

DRUGS (7)
  1. ZICAM COLD REMEDY PLUS LIQUI-LOZ [Suspect]
     Dosage: Q3 HOURS X 3 DAYS
     Dates: start: 20101027, end: 20101029
  2. BENICAR [Concomitant]
  3. DARVOCET [Concomitant]
  4. METAGLYCEMX [Concomitant]
  5. ^INSINASE^ PRODUCT [Concomitant]
  6. MAGNESIUM [Concomitant]
  7. V; V7 SUPPLEMENT [Concomitant]

REACTIONS (2)
  - AGEUSIA [None]
  - ANOSMIA [None]
